FAERS Safety Report 14111589 (Version 1)
Quarter: 2017Q4

REPORT INFORMATION
  Report Type: Spontaneous
  Country: DE (occurrence: DE)
  Receive Date: 20171020
  Receipt Date: 20171020
  Transmission Date: 20180321
  Serious: Yes (Other)
  Sender: FDA-Public Use
  Company Number: GXKR2017DE005150

PATIENT
  Age: 1 Day
  Sex: Male
  Weight: 2.37 kg

DRUGS (9)
  1. NEPRESOL (DIHYDRALAZINE MESILATE) [Concomitant]
     Active Substance: DIHYDRALAZINE MESYLATE
     Indication: FOETAL EXPOSURE DURING PREGNANCY
     Dosage: MATERNAL DOSE: 25 MG QD (30-30.1 GESTATIONAL WEEK)
     Route: 064
     Dates: start: 20170201, end: 20170201
  2. CEFUROXIM [Concomitant]
     Active Substance: CEFUROXIME
     Indication: FOETAL EXPOSURE DURING PREGNANCY
     Dosage: MATERNAL DOSE: 250 MG QD (26-29 GESTATIONAL WEEK)
     Route: 064
  3. FOLIO FORTE [Concomitant]
     Active Substance: FOLIC ACID\VITAMINS
     Indication: FOETAL EXPOSURE DURING PREGNANCY
     Dosage: MATERNAL DOSE: 0.8 MF QD (0-14 GESTATIONAL WEEK)
     Route: 064
  4. ATENOLOL. [Suspect]
     Active Substance: ATENOLOL
     Indication: FOETAL EXPOSURE DURING PREGNANCY
     Dosage: MATERNAL DOSE: 75 MG QD (0-30 GESTATIONAL WEEK)
     Route: 064
     Dates: start: 20160705, end: 20170131
  5. PENICILLIN NOS [Concomitant]
     Active Substance: PENICILLIN
     Indication: FOETAL EXPOSURE DURING PREGNANCY
     Dosage: MATERNAL DOSE: 1000 MG QD (24-25 GESTATIONAL WEEK)
     Route: 064
  6. PRESINOL [Concomitant]
     Active Substance: METHYLDOPA
     Indication: FOETAL EXPOSURE DURING PREGNANCY
     Dosage: MATERNAL DOSE: 250 MG BID (30.2-38 GESTATIONAL WEEK)
     Route: 064
     Dates: start: 20170202, end: 20170328
  7. L-THYROXIN [Concomitant]
     Active Substance: LEVOTHYROXINE SODIUM
     Indication: FOETAL EXPOSURE DURING PREGNANCY
     Dosage: MATERNAL DOSE: 125 UG QD (0-38 GESTATIONAL WEEK)
     Route: 064
     Dates: start: 20160705, end: 20170328
  8. MEDIKINET [Concomitant]
     Active Substance: METHYLPHENIDATE
     Indication: FOETAL EXPOSURE DURING PREGNANCY
     Dosage: MATERNAL DOSE: 50 MG QD (0-9.6 GESTATIONAL WEEK)
     Route: 064
     Dates: start: 20160605, end: 20160912
  9. CELESTAN [Concomitant]
     Active Substance: BETAMETHASONE
     Indication: FOETAL EXPOSURE DURING PREGNANCY
     Dosage: MATERNAL DOSE: 12 MG QD (30.6-31 GESTATIONAL WEEK)
     Route: 064
     Dates: start: 20170206, end: 20170207

REACTIONS (1)
  - Small for dates baby [Unknown]

NARRATIVE: CASE EVENT DATE: 20170328
